FAERS Safety Report 9680984 (Version 1)
Quarter: 2013Q4

REPORT INFORMATION
  Report Type: Report from Study
  Country: ES (occurrence: ES)
  Receive Date: 20131111
  Receipt Date: 20131111
  Transmission Date: 20140711
  Serious: Yes (Other)
  Sender: FDA-Public Use
  Company Number: ES-BAYER-2013-136763

PATIENT
  Age: 94 Year
  Sex: Female

DRUGS (1)
  1. ADIRO 300 MG COMPRIMIDOS GASTRORRESISTENTES EFG, 500 COMPRIMIDOS [Suspect]
     Indication: PROPHYLAXIS
     Dosage: 300 MG, QD (0-1-0)
     Route: 048
     Dates: start: 2013, end: 20131009

REACTIONS (1)
  - Iron deficiency anaemia [Recovering/Resolving]
